FAERS Safety Report 4400075-X (Version None)
Quarter: 2004Q3

REPORT INFORMATION
  Report Type: 
  Country: None (occurrence: None)
  Receive Date: 20040716
  Receipt Date: 20040614
  Transmission Date: 20050211
  Serious: Yes (Life-Threatening)
  Sender: FDA-Public Use
  Company Number: JP-MERCK-0406USA01723

PATIENT
  Age: 55 Year
  Sex: Male

DRUGS (3)
  1. PRIMAXIN [Suspect]
     Route: 042
     Dates: start: 20040517, end: 20040526
  2. ELECTROLYTES (UNSPECIFIED) AND SODIUM LACTATE [Concomitant]
     Route: 042
     Dates: start: 20040517, end: 20040524
  3. HEPARIN SODIUM [Concomitant]
     Indication: THROMBOSIS PROPHYLAXIS
     Route: 042
     Dates: start: 20040517, end: 20040523

REACTIONS (1)
  - HYPERNATRAEMIA [None]
